FAERS Safety Report 8575110-8 (Version None)
Quarter: 2012Q3

REPORT INFORMATION
  Report Type: 
  Country: None (occurrence: None)
  Receive Date: 20120807
  Receipt Date: 20120731
  Transmission Date: 20120928
  Serious: Yes (Other)
  Sender: FDA-Public Use
  Company Number: US-009507513-1208USA001178

PATIENT

DRUGS (3)
  1. VICTRELIS [Suspect]
     Indication: HEPATITIS C
     Dosage: UNK
     Dates: start: 20120702
  2. PEG-INTRON [Suspect]
     Indication: HEPATITIS C
     Dosage: UNK
     Dates: start: 20120604
  3. REBETOL [Suspect]
     Indication: HEPATITIS C
     Dosage: UNK
     Dates: start: 20120604

REACTIONS (8)
  - IMPAIRED HEALING [None]
  - PLATELET COUNT DECREASED [None]
  - TOOTH ABSCESS [None]
  - SKIN LESION [None]
  - WHITE BLOOD CELL COUNT DECREASED [None]
  - PRURITUS [None]
  - TOOTH EXTRACTION [None]
  - MEMORY IMPAIRMENT [None]
